FAERS Safety Report 4595904-3 (Version None)
Quarter: 2005Q1

REPORT INFORMATION
  Report Type: 
  Country: None (occurrence: None)
  Receive Date: 20050224
  Receipt Date: 20050202
  Transmission Date: 20050727
  Serious: Yes (Death)
  Sender: FDA-Public Use
  Company Number: EWC040940749

PATIENT
  Age: 75 Year
  Sex: Female
  Weight: 60 kg

DRUGS (4)
  1. ZYPREXA [Suspect]
     Indication: SCHIZOPHRENIA, PARANOID TYPE
     Dosage: 7.5 MG DAY
     Dates: start: 20030619
  2. IMPROMEN DECANOAS (BROMPERIDOL DECANOATE) [Concomitant]
  3. LORAZEPAM [Concomitant]
  4. AKINETON [Concomitant]

REACTIONS (1)
  - SUDDEN DEATH [None]
